FAERS Safety Report 6146197-7 (Version None)
Quarter: 2009Q2

REPORT INFORMATION
  Report Type: 
  Country: None (occurrence: None)
  Receive Date: 20090407
  Receipt Date: 20090314
  Transmission Date: 20091009
  Serious: No
  Sender: FDA-Public Use
  Company Number: US-B.I. PHARMACEUTICALS,INC./RIDGEFIELD-2009-BP-04211BP

PATIENT
  Age: 62 Year
  Sex: Female

DRUGS (1)
  1. METACAM ORAL SUSPENSION [Suspect]
     Indication: ACCIDENTAL EXPOSURE
     Route: 031
     Dates: start: 20090314, end: 20090314

REACTIONS (4)
  - ACCIDENTAL EXPOSURE [None]
  - EYE IRRITATION [None]
  - EYE PAIN [None]
  - OCULAR HYPERAEMIA [None]
